FAERS Safety Report 4679804-6 (Version None)
Quarter: 2005Q2

REPORT INFORMATION
  Report Type: 
  Country: None (occurrence: None)
  Receive Date: 20050531
  Receipt Date: 20050519
  Transmission Date: 20051028
  Serious: Yes (Congenital Anomaly)
  Sender: FDA-Public Use
  Company Number: B0381806A

PATIENT

DRUGS (3)
  1. LAMICTAL [Suspect]
     Indication: EPILEPSY
     Dosage: 200 MG/ TWICE PER DAY/TRANSPLACEN
     Route: 064
  2. CARBAMAZEPINE [Suspect]
     Indication: EPILEPSY
     Dosage: 300 MG /TWICE PER DAY/ TRANSPLACEN
     Route: 064
  3. VITAMIN K [Concomitant]

REACTIONS (5)
  - BRAIN MALFORMATION [None]
  - CONGENITAL ANOMALY [None]
  - DRUG EXPOSURE DURING PREGNANCY [None]
  - ENCEPHALOCELE [None]
  - LIPOMA [None]
